FAERS Safety Report 24971884 (Version 1)
Quarter: 2025Q1

REPORT INFORMATION
  Report Type: Spontaneous
  Country: US (occurrence: US)
  Receive Date: 20250214
  Receipt Date: 20250214
  Transmission Date: 20250409
  Serious: No
  Sender: PFIZER
  Company Number: US-PFIZER INC-PV202500017207

PATIENT
  Age: 76 Year
  Sex: Female

DRUGS (7)
  1. IBRANCE [Suspect]
     Active Substance: PALBOCICLIB
     Indication: Breast cancer metastatic
     Dosage: CAPSULE ORAL DAILY, TAKE FOR 21 DAYS THEN 7 DAYS OFF
     Route: 048
     Dates: start: 20241122
  2. PROTONIX [Suspect]
     Active Substance: PANTOPRAZOLE SODIUM
  3. EFFEXOR XR [Suspect]
     Active Substance: VENLAFAXINE HYDROCHLORIDE
     Dosage: (37.5 MG) CAPSULE SR 24 HR ORAL DAILY
     Route: 048
  4. FEMARA [Suspect]
     Active Substance: LETROZOLE
  5. HYDRALAZINE [Suspect]
     Active Substance: HYDRALAZINE HYDROCHLORIDE
  6. LOSARTAN [Suspect]
     Active Substance: LOSARTAN
  7. LETROZOLE [Concomitant]
     Active Substance: LETROZOLE

REACTIONS (2)
  - Fatigue [Unknown]
  - Alopecia [Unknown]
